FAERS Safety Report 10481015 (Version 1)
Quarter: 2014Q3

REPORT INFORMATION
  Report Type: Spontaneous
  Country: US (occurrence: US)
  Receive Date: 20140929
  Receipt Date: 20140929
  Transmission Date: 20150326
  Serious: No
  Sender: FDA-Public Use
  Company Number: US-009507513-1409USA010291

PATIENT
  Age: 67 Year
  Sex: Female
  Weight: 90.7 kg

DRUGS (4)
  1. JANUVIA [Suspect]
     Active Substance: SITAGLIPTIN PHOSPHATE
     Indication: BLOOD CHOLESTEROL ABNORMAL
     Dosage: 100 MG / 1 A DAY
     Route: 048
     Dates: start: 201407
  2. METFORMIN [Concomitant]
     Active Substance: METFORMIN HYDROCHLORIDE
     Dosage: 1000 MG A DAY
  3. CRESTOR [Concomitant]
     Active Substance: ROSUVASTATIN CALCIUM
     Dosage: UNK
  4. LEVOTHYROXINE SODIUM. [Concomitant]
     Active Substance: LEVOTHYROXINE SODIUM
     Dosage: 150 MG, ONCE A DAY
     Route: 048

REACTIONS (9)
  - Heart rate increased [Unknown]
  - Lethargy [Unknown]
  - Diarrhoea [Unknown]
  - Faeces discoloured [Unknown]
  - Micturition frequency decreased [Unknown]
  - Drug administration error [Unknown]
  - Pain in extremity [Unknown]
  - Bladder disorder [Unknown]
  - Muscle spasms [Unknown]

NARRATIVE: CASE EVENT DATE: 2014
